FAERS Safety Report 12591763 (Version 1)
Quarter: 2016Q3

REPORT INFORMATION
  Report Type: Spontaneous
  Country: US (occurrence: None)
  Receive Date: 20160725
  Receipt Date: 20160725
  Transmission Date: 20161109
  Serious: Yes (Disabling, Other)
  Sender: FDA-Public Use
  Company Number: None

PATIENT
  Age: 56 Year
  Sex: Male
  Weight: 131.09 kg

DRUGS (3)
  1. HYSINGLA ER [Suspect]
     Active Substance: HYDROCODONE BITARTRATE
     Indication: BACK INJURY
     Route: 048
     Dates: start: 20160706, end: 20160720
  2. ASPRINS [Concomitant]
  3. LYSINOPRIL [Concomitant]

REACTIONS (6)
  - Sluggishness [None]
  - Muscle spasms [None]
  - Pain in extremity [None]
  - Hyperhidrosis [None]
  - Hot flush [None]
  - Insomnia [None]

NARRATIVE: CASE EVENT DATE: 20160708
